FAERS Safety Report 15101024 (Version 1)
Quarter: 2018Q2

REPORT INFORMATION
  Report Type: Spontaneous
  Country: US (occurrence: US)
  Receive Date: 20180611
  Receipt Date: 20180611
  Transmission Date: 20180711
  Serious: Yes (Other)
  Sender: FDA-Public Use
  Company Number: None

PATIENT
  Sex: Male

DRUGS (5)
  1. ENBREL [Suspect]
     Active Substance: ETANERCEPT
     Indication: RHEUMATOID ARTHRITIS
     Route: 058
     Dates: start: 20180109
  2. FISH OIL [Concomitant]
     Active Substance: FISH OIL
  3. MTX [Concomitant]
     Active Substance: METHOTREXATE SODIUM
  4. MULTIVITAMIN [Concomitant]
     Active Substance: VITAMINS
  5. FA [Concomitant]

REACTIONS (5)
  - Arthritis [None]
  - Gait disturbance [None]
  - Pain [None]
  - Skin cancer [None]
  - Back pain [None]
